FAERS Safety Report 5907139-X (Version None)
Quarter: 2008Q4

REPORT INFORMATION
  Report Type: 
  Country: None (occurrence: None)
  Receive Date: 20081003
  Receipt Date: 20080922
  Transmission Date: 20090506
  Serious: Yes (Hospitalization, Other)
  Sender: FDA-Public Use
  Company Number: US-JNJFOC-20080905265

PATIENT
  Sex: Female

DRUGS (5)
  1. REMICADE [Suspect]
     Indication: COLITIS
  2. S-ASA [Concomitant]
  3. MERCAPTOPURINE [Concomitant]
  4. FOLIC ACID [Concomitant]
  5. VITAMIN CAP [Concomitant]

REACTIONS (1)
  - CYTOMEGALOVIRUS VIRAEMIA [None]
